FAERS Safety Report 7236793-8 (Version None)
Quarter: 2011Q1

REPORT INFORMATION
  Report Type: 
  Country: None (occurrence: None)
  Receive Date: 20110120
  Receipt Date: 20101109
  Transmission Date: 20110831
  Serious: Yes (Death, Hospitalization)
  Sender: FDA-Public Use
  Company Number: JP-AMGEN-JPNCT2010005550

PATIENT

DRUGS (10)
  1. FUNGIZONE [Concomitant]
     Indication: INFECTION PROPHYLAXIS
     Dosage: 8 ML, 1X/DAY
     Route: 048
     Dates: start: 20050426, end: 20051023
  2. SODIUM ALGINATE [Concomitant]
     Dosage: UNSPECIFIED DOSE
     Route: 048
     Dates: start: 20050422, end: 20051023
  3. BENAMBAX [Concomitant]
     Indication: PROPHYLAXIS
     Dosage: 300 MG, 1X/DAY
     Dates: start: 20050425, end: 20050519
  4. ETANERCEPT [Suspect]
     Indication: RHEUMATOID ARTHRITIS
     Dosage: 25 MG, 2 TIMES/WK
     Route: 058
     Dates: start: 20050510, end: 20050816
  5. MAGNESIUM OXIDE [Concomitant]
     Dosage: UNSPECIFIED DOSE
     Route: 048
  6. MOBIC [Concomitant]
     Indication: RHEUMATOID ARTHRITIS
     Dosage: 10 MG, 1X/DAY
     Route: 048
     Dates: start: 20050422, end: 20051023
  7. BETAMETHASONE [Suspect]
     Indication: RHEUMATOID ARTHRITIS
     Dosage: 3 MG, 1X/DAY
     Route: 048
     Dates: start: 20050702, end: 20050818
  8. ALLOID [Concomitant]
     Indication: PROPHYLAXIS AGAINST GASTROINTESTINAL ULCER
     Dosage: 60 ML, 1X/DAY
     Dates: end: 20051023
  9. SOLU-MEDROL [Suspect]
     Dosage: 50 MG, 1X/DAY
     Route: 048
     Dates: start: 20050426, end: 20050519
  10. ENDOXAN [Suspect]
     Indication: RHEUMATOID ARTHRITIS
     Dosage: 50 MG, 1X/DAY
     Route: 042
     Dates: start: 20050707, end: 20050818

REACTIONS (2)
  - PULMONARY ALVEOLAR HAEMORRHAGE [None]
  - PNEUMOCYSTIS JIROVECI PNEUMONIA [None]
